FAERS Safety Report 10216714 (Version 1)
Quarter: 2014Q2

REPORT INFORMATION
  Report Type: Spontaneous
  Country: US (occurrence: US)
  Receive Date: 20140604
  Receipt Date: 20140604
  Transmission Date: 20141212
  Serious: Yes (Other)
  Sender: FDA-Public Use
  Company Number: US-PFIZER INC-2014149056

PATIENT
  Age: 31 Year
  Sex: Male

DRUGS (2)
  1. LYRICA [Suspect]
     Indication: LUMBAR RADICULOPATHY
     Dosage: 75 MG, 2X/DAY FOR 3 DAYS
  2. LYRICA [Suspect]
     Dosage: 75 MG, 3X/DAY

REACTIONS (7)
  - Weight increased [Unknown]
  - Drug ineffective [Unknown]
  - Oedema [Unknown]
  - Swelling [Unknown]
  - Somnambulism [Unknown]
  - Poor quality sleep [Unknown]
  - Fatigue [Unknown]
